FAERS Safety Report 20770293 (Version 5)
Quarter: 2022Q2

REPORT INFORMATION
  Report Type: Report from Study
  Country: TW (occurrence: None)
  Receive Date: 20220429
  Receipt Date: 20220624
  Transmission Date: 20220720
  Serious: Yes (Hospitalization, Other)
  Sender: FDA-Public Use
  Company Number: TW-Eisai Medical Research-EC-2022-112826

PATIENT
  Age: 56 Year
  Sex: Female
  Weight: 49.1 kg

DRUGS (17)
  1. LENVATINIB [Suspect]
     Active Substance: LENVATINIB
     Indication: Oesophageal adenocarcinoma
     Dosage: STARTING DOSE AT 8 MG, FLUCTUATED DOSAGE
     Route: 048
     Dates: start: 20211019, end: 20220321
  2. LENVATINIB [Suspect]
     Active Substance: LENVATINIB
     Indication: Adenocarcinoma gastric
     Route: 048
     Dates: start: 20220329, end: 20220406
  3. PEMBROLIZUMAB [Suspect]
     Active Substance: PEMBROLIZUMAB
     Indication: Oesophageal adenocarcinoma
     Route: 041
     Dates: start: 20211019, end: 20220111
  4. PEMBROLIZUMAB [Suspect]
     Active Substance: PEMBROLIZUMAB
     Indication: Adenocarcinoma gastric
     Route: 041
     Dates: start: 20220301, end: 20220301
  5. PEMBROLIZUMAB [Suspect]
     Active Substance: PEMBROLIZUMAB
     Route: 041
     Dates: start: 20220419
  6. OXALIPLATIN [Suspect]
     Active Substance: OXALIPLATIN
     Indication: Oesophageal adenocarcinoma
     Dosage: DOSE UNKNOWN
     Route: 042
     Dates: start: 20211019, end: 20211130
  7. OXALIPLATIN [Suspect]
     Active Substance: OXALIPLATIN
     Indication: Adenocarcinoma gastric
     Dosage: DOSE UNKNOWN
     Route: 042
     Dates: start: 20211221, end: 20211221
  8. CAPECITABINE [Suspect]
     Active Substance: CAPECITABINE
     Indication: Oesophageal adenocarcinoma
     Dosage: UNKNOWN DOSE, TWICE DAILY FOR 14 DAYS EVERY 3 WEEKS
     Route: 048
     Dates: start: 20211019, end: 20220104
  9. CAPECITABINE [Suspect]
     Active Substance: CAPECITABINE
     Indication: Adenocarcinoma gastric
  10. FURSULTIAMINE [Concomitant]
     Active Substance: FURSULTIAMINE
     Dates: start: 20211012, end: 20220321
  11. METOCLOPRAMIDE [Concomitant]
     Active Substance: METOCLOPRAMIDE
     Dates: start: 20220215, end: 20220321
  12. LANSOPRAZOLE [Concomitant]
     Active Substance: LANSOPRAZOLE
     Dates: start: 20220215, end: 20220418
  13. FEXOFENADINE HYDROCHLORIDE [Concomitant]
     Active Substance: FEXOFENADINE HYDROCHLORIDE
     Dates: start: 20220310, end: 20220323
  14. ACETYLCYSTEINE [Concomitant]
     Active Substance: ACETYLCYSTEINE
     Dates: start: 20220310, end: 20220323
  15. LOPERAMIDE [Concomitant]
     Active Substance: LOPERAMIDE
     Dates: start: 20220310, end: 20220324
  16. STROCAIN [ALUMINIUM HYDROXIDE;CALCIUM CARBONATE;MAGNESIUM CARBONATE;OX [Concomitant]
     Dates: start: 20220310, end: 20220613
  17. PANTOPRAZOLE [Concomitant]
     Active Substance: PANTOPRAZOLE
     Route: 042
     Dates: start: 20220322, end: 20220322

REACTIONS (2)
  - Gastric ulcer [Not Recovered/Not Resolved]
  - Diarrhoea [Recovered/Resolved]

NARRATIVE: CASE EVENT DATE: 20220401
